FAERS Safety Report 14667498 (Version 2)
Quarter: 2025Q2

REPORT INFORMATION
  Report Type: Spontaneous
  Country: US (occurrence: US)
  Receive Date: 20180322
  Receipt Date: 20250410
  Transmission Date: 20250716
  Serious: Yes (Other)
  Sender: BAYER
  Company Number: US-BAYER-2018-049947

PATIENT
  Sex: Male

DRUGS (13)
  1. NEXAVAR [Suspect]
     Active Substance: SORAFENIB
  2. BUMEX [Concomitant]
     Active Substance: BUMETANIDE
  3. VITAMIN D [Concomitant]
     Active Substance: VITAMIN D NOS
  4. CIPROFLOXACIN [Concomitant]
     Active Substance: CIPROFLOXACIN
  5. FAMOTIDINE [Concomitant]
     Active Substance: FAMOTIDINE
  6. INSULIN DETEMIR [Concomitant]
     Active Substance: INSULIN DETEMIR
  7. LACTULOSE [Concomitant]
     Active Substance: LACTULOSE
  8. MAGNESIUM OXIDE [Concomitant]
     Active Substance: MAGNESIUM OXIDE
  9. NADOLOL [Concomitant]
     Active Substance: NADOLOL
  10. PAROXETINE [Concomitant]
     Active Substance: PAROXETINE
  11. POLYETHYLENE GLYCOLS [Concomitant]
     Active Substance: POLYETHYLENE GLYCOLS
  12. RIFAXIMIN [Concomitant]
     Active Substance: RIFAXIMIN
  13. SPIRONOLACTONE [Concomitant]
     Active Substance: SPIRONOLACTONE

REACTIONS (2)
  - Hyperbilirubinaemia [None]
  - Hyperammonaemia [None]

NARRATIVE: CASE EVENT DATE: 20130101
